FAERS Safety Report 8511168-X (Version None)
Quarter: 2012Q3

REPORT INFORMATION
  Report Type: 
  Country: None (occurrence: None)
  Receive Date: 20120716
  Receipt Date: 20120710
  Transmission Date: 20120928
  Serious: Yes (Other)
  Sender: FDA-Public Use
  Company Number: US-BAYER-2012-068063

PATIENT
  Sex: Female

DRUGS (1)
  1. MIRENA [Suspect]
     Indication: CONTRACEPTION
     Dosage: 20 MCG/24HR, CONT
     Dates: start: 20100901, end: 20120504

REACTIONS (7)
  - DEVICE BREAKAGE [None]
  - DEVICE DEPLOYMENT ISSUE [None]
  - GENITAL INFECTION FUNGAL [None]
  - VAGINAL HAEMORRHAGE [None]
  - ABDOMINAL PAIN [None]
  - OVARIAN CYST [None]
  - COMPLICATION OF DEVICE REMOVAL [None]
